FAERS Safety Report 4776931-X (Version None)
Quarter: 2005Q3

REPORT INFORMATION
  Report Type: 
  Country: None (occurrence: None)
  Receive Date: 20050914
  Receipt Date: 20040803
  Transmission Date: 20060218
  Serious: Yes (Death, Hospitalization)
  Sender: FDA-Public Use
  Company Number: 163-20785-04070618

PATIENT
  Age: 59 Year
  Sex: Male
  Weight: 88.3 kg

DRUGS (1)
  1. THALOMID [Suspect]
     Indication: OESOPHAGEAL CARCINOMA
     Dosage: 400 MG, DAILY, ORAL
     Route: 048
     Dates: start: 20040721, end: 20040721

REACTIONS (3)
  - DISEASE PROGRESSION [None]
  - DYSPNOEA [None]
  - PLEURAL EFFUSION [None]
